FAERS Safety Report 14783406 (Version 2)
Quarter: 2018Q3

REPORT INFORMATION
  Report Type: Report from Study
  Country: US (occurrence: US)
  Receive Date: 20180420
  Receipt Date: 20180702
  Transmission Date: 20181010
  Serious: Yes (Hospitalization, Other)
  Sender: FDA-Public Use
  Company Number: US-OTSUKA-2018_009384

PATIENT
  Age: 66 Year
  Sex: Male

DRUGS (25)
  1. VALPROIC ACID. [Concomitant]
     Active Substance: VALPROIC ACID
     Indication: SEIZURE
     Dosage: (250 MG/5 ML), TID (GIVE 10 ML VIA G TUBE)
     Route: 050
     Dates: end: 20180412
  2. TYLENOL [Concomitant]
     Active Substance: ACETAMINOPHEN
     Indication: PYREXIA
     Dosage: 650 MG, Q4HR (VIA G?TUBE AS NEEDED)
     Route: 050
  3. ELIQUIS [Concomitant]
     Active Substance: APIXABAN
     Indication: ANTICOAGULANT THERAPY
     Dosage: 5 MG, BID (ONE TABLET 2 TIMES A DAY, VIA G TUBE)
     Route: 050
     Dates: end: 20180412
  4. IPRATROPIUM BROMIDE/ALBUTEROL SULFATE [Concomitant]
     Active Substance: ALBUTEROL SULFATE\IPRATROPIUM BROMIDE
     Indication: DYSPNOEA
     Dosage: (3 MG/3ML), Q4HR (1 DOSE INHALE)
     Route: 048
     Dates: end: 20180412
  5. DEXTROMETHORPHAN/QUINIDINE [Suspect]
     Active Substance: DEXTROMETHORPHAN HYDROBROMIDE\QUINIDINE SULFATE
     Indication: AFFECT LABILITY
     Dosage: 1 DF, BID
     Route: 048
     Dates: start: 20170406
  6. LEVOTHYROXINE SODIUM. [Concomitant]
     Active Substance: LEVOTHYROXINE SODIUM
     Indication: THYROID DISORDER
     Dosage: 50 ?G, QD (VIA G?TUBE)
     Route: 050
     Dates: end: 20160412
  7. KEPPRA [Concomitant]
     Active Substance: LEVETIRACETAM
     Indication: SEIZURE
     Dosage: (500MG/5ML), BID (GIVE 500 MG VIA G TUBE)
     Route: 050
     Dates: end: 20180412
  8. FLEET ENEMA [Concomitant]
     Active Substance: SODIUM PHOSPHATE, DIBASIC\SODIUM PHOSPHATE, MONOBASIC
     Indication: CONSTIPATION
     Dosage: (7?19 GM/118 ML), QD (INSERT 1 APPLICATOR FULL, EVERY 24 HRS AS NEEDED)
     Route: 054
  9. MILK OF MAGNESIA [Concomitant]
     Active Substance: MAGNESIUM HYDROXIDE
     Indication: CONSTIPATION
     Dosage: (400 MG/5 ML), QD (GIVE 30 ML VIA G?TUBE EVERY 24 HOURS, AS NEEDED)
     Route: 050
  10. IPRATROPIUM BROMIDE/ALBUTEROL SULFATE [Concomitant]
     Active Substance: ALBUTEROL SULFATE\IPRATROPIUM BROMIDE
     Indication: RESPIRATORY DISORDER
     Dosage: (3 MG/ML), QID (1 VIAL INHALE)
     Route: 048
     Dates: end: 20180412
  11. NORCO [Concomitant]
     Active Substance: ACETAMINOPHEN\HYDROCODONE BITARTRATE
     Indication: PAIN
     Dosage: (10/325 MG), Q4HR (GIVE 1 TABLET VIA G?TUBE, AS NEEDED)
     Route: 050
     Dates: end: 20180412
  12. LEXAPRO [Concomitant]
     Active Substance: ESCITALOPRAM OXALATE
     Indication: DEPRESSION
     Dosage: 20 MG, QD (VIA G TUBE)
     Route: 050
     Dates: end: 20180412
  13. BACLOFEN. [Concomitant]
     Active Substance: BACLOFEN
     Indication: MUSCLE SPASMS
     Dosage: 10 MG, TID (VIA G TUBE, PRIOR TO THERAPY)
     Route: 050
     Dates: end: 20180412
  14. FENTANYL. [Concomitant]
     Active Substance: FENTANYL
     Indication: PAIN
     Dosage: (100 MCG/HR), EVERY 72 HOURS (PATCH)
     Route: 062
     Dates: end: 20180412
  15. NITROGLYCERIN. [Concomitant]
     Active Substance: NITROGLYCERIN
     Indication: CHEST PAIN
     Dosage: 0.4 MG, (EVERY 5 MINUTES, AS NEEDED); MAXIMUM OF 3 TABLETS IN 15 MINS, IF SBP IS GREATER THAN 90
     Route: 060
  16. FLONASE [Concomitant]
     Active Substance: FLUTICASONE PROPIONATE
     Indication: HYPERSENSITIVITY
     Dosage: UNK, BID (ONE SPRAY IN ALTERNATING NOSTRILS)
     Route: 045
     Dates: end: 20180412
  17. NYSTATIN. [Concomitant]
     Active Substance: NYSTATIN
     Indication: THERAPEUTIC SKIN CARE TOPICAL
     Dosage: (100000 UNIT/GM), BID (APPLY TO GROIN AND UNDER ABDOMEN)
     Route: 061
  18. GABAPENTIN. [Concomitant]
     Active Substance: GABAPENTIN
     Indication: NEURALGIA
     Dosage: 100 MG, TID (VIA G TUBE)
     Route: 050
     Dates: end: 20180412
  19. POLYETHYLENE GLYCOL [Concomitant]
     Active Substance: POLYETHYLENE GLYCOLS
     Indication: BOWEL MOVEMENT IRREGULARITY
     Dosage: 17 G, QD (POWDER GIVEN VIA G TUBE, MIX WITH 4 OZ WATER)
     Route: 050
     Dates: end: 20180412
  20. ATIVAN [Concomitant]
     Active Substance: LORAZEPAM
     Indication: ANXIETY DISORDER
     Dosage: 1 MG, TID (ONE TABLET VIA G TUBE)
     Route: 050
     Dates: end: 20180412
  21. IPRATROPIUM BROMIDE/ALBUTEROL SULFATE [Concomitant]
     Active Substance: ALBUTEROL SULFATE\IPRATROPIUM BROMIDE
     Indication: WHEEZING
  22. OMEPRAZOLE. [Concomitant]
     Active Substance: OMEPRAZOLE
     Indication: GASTROOESOPHAGEAL REFLUX DISEASE
     Dosage: 20 MG, QD (SUSPENSION)
     Route: 048
     Dates: end: 20180412
  23. DULCOLAX NOS [Concomitant]
     Active Substance: BISACODYL OR DOCUSATE SODIUM
     Indication: CONSTIPATION
     Dosage: 10 MG, QD (AS NEEDED)
     Route: 054
  24. DULCOLAX NOS [Concomitant]
     Active Substance: BISACODYL OR DOCUSATE SODIUM
     Indication: CONSTIPATION
     Dosage: 5 MG, QD (GIVE 10 MG VIA G?TUBE EVERY 24 HRS AS NEEDED)
     Route: 050
  25. TYLENOL [Concomitant]
     Active Substance: ACETAMINOPHEN
     Indication: PAIN
     Dosage: 650 MG, Q3HR (VIA G?TUBE AS NEEDED)
     Route: 050

REACTIONS (5)
  - Deep vein thrombosis [Recovered/Resolved]
  - Fall [Recovered/Resolved]
  - Hip fracture [Recovered/Resolved with Sequelae]
  - Pneumonia aspiration [Recovered/Resolved]
  - Wrong technique in product usage process [Unknown]

NARRATIVE: CASE EVENT DATE: 20180318
